FAERS Safety Report 24911932 (Version 2)
Quarter: 2025Q1

REPORT INFORMATION
  Report Type: Spontaneous
  Country: US (occurrence: US)
  Receive Date: 20250131
  Receipt Date: 20250207
  Transmission Date: 20250408
  Serious: No
  Sender: SANOFI AVENTIS
  Company Number: AE-SA-2025SA025902

PATIENT
  Age: 73 Year
  Sex: Female

DRUGS (29)
  1. KEVZARA [Suspect]
     Active Substance: SARILUMAB
     Indication: Rheumatoid arthritis
     Dosage: 200 MG, QOW
     Route: 058
  2. AMMONIUM LACTATE [Concomitant]
     Active Substance: AMMONIUM LACTATE
  3. CLOTRIMAZOLE [Concomitant]
     Active Substance: CLOTRIMAZOLE
  4. FLUOXETINE HYDROCHLORIDE [Concomitant]
     Active Substance: FLUOXETINE HYDROCHLORIDE
  5. IBUPROFEN [Concomitant]
     Active Substance: IBUPROFEN
  6. MOUNJARO [Concomitant]
     Active Substance: TIRZEPATIDE
  7. NOVOLOG [Concomitant]
     Active Substance: INSULIN ASPART
  8. QUETIAPINE FUMARATE [Concomitant]
     Active Substance: QUETIAPINE FUMARATE
  9. TYLENOL [Concomitant]
     Active Substance: ACETAMINOPHEN
  10. VITAMIN D NOS [Concomitant]
     Active Substance: CHOLECALCIFEROL\ERGOCALCIFEROL
  11. AMLODIPINE [Concomitant]
     Active Substance: AMLODIPINE BESYLATE
  12. CARVEDILOL [Concomitant]
     Active Substance: CARVEDILOL
  13. CLONAZEPAM [Concomitant]
     Active Substance: CLONAZEPAM
  14. CLONIDINE [Concomitant]
     Active Substance: CLONIDINE
  15. DULOXETINE [Concomitant]
     Active Substance: DULOXETINE
  16. EZETIMIBE [Concomitant]
     Active Substance: EZETIMIBE
  17. FOLIC ACID [Concomitant]
     Active Substance: FOLIC ACID
  18. GABAPENTIN [Concomitant]
     Active Substance: GABAPENTIN
  19. HYDROCHLOROTHIAZIDE [Concomitant]
     Active Substance: HYDROCHLOROTHIAZIDE
  20. JARDIANCE [Concomitant]
     Active Substance: EMPAGLIFLOZIN
  21. LOSARTAN [Concomitant]
     Active Substance: LOSARTAN
  22. MELATONIN [Concomitant]
     Active Substance: MELATONIN
  23. ONDANSETRON [Concomitant]
     Active Substance: ONDANSETRON
  24. PANTOPRAZOLE [Concomitant]
     Active Substance: PANTOPRAZOLE
  25. PRAVASTATIN [Concomitant]
     Active Substance: PRAVASTATIN
  26. SUCRALFATE [Concomitant]
     Active Substance: SUCRALFATE
  27. TRULANCE [Concomitant]
     Active Substance: PLECANATIDE
  28. VASCEPA [Concomitant]
     Active Substance: ICOSAPENT ETHYL
  29. SODIUM CHLORIDE [Concomitant]
     Active Substance: SODIUM CHLORIDE

REACTIONS (3)
  - Blood glucose decreased [Unknown]
  - Vomiting [Unknown]
  - Nausea [Unknown]

NARRATIVE: CASE EVENT DATE: 20250121
